FAERS Safety Report 7778773-X (Version None)
Quarter: 2011Q3

REPORT INFORMATION
  Report Type: 
  Country: None (occurrence: None)
  Receive Date: 20110926
  Receipt Date: 20110915
  Transmission Date: 20111222
  Serious: Yes (Hospitalization)
  Sender: FDA-Public Use
  Company Number: US-JNJFOC-20110907017

PATIENT
  Sex: Female
  Weight: 73.94 kg

DRUGS (6)
  1. INDAPAMIDE [Concomitant]
     Route: 048
  2. CITALOPRAM [Concomitant]
     Route: 048
  3. PRAVASTATIN [Concomitant]
     Route: 048
  4. SIMPONI [Suspect]
     Indication: ARTHRITIS
     Route: 058
     Dates: start: 20090101
  5. GABAPENTIN [Concomitant]
     Route: 048
  6. LISINOPRIL [Concomitant]
     Route: 048

REACTIONS (5)
  - JOINT INJURY [None]
  - FALL [None]
  - MUSCLE DISORDER [None]
  - GOUT [None]
  - PRODUCT QUALITY ISSUE [None]
